FAERS Safety Report 5664068-7 (Version None)
Quarter: 2008Q1

REPORT INFORMATION
  Report Type: 
  Country: None (occurrence: None)
  Receive Date: 20080314
  Receipt Date: 20080229
  Transmission Date: 20080703
  Serious: Yes (Other)
  Sender: FDA-Public Use
  Company Number: US-ELI_LILLY_AND_COMPANY-US200803000150

PATIENT
  Age: 54 Year
  Sex: Female

DRUGS (2)
  1. FORTEO [Suspect]
     Indication: OSTEOPOROSIS
     Dates: start: 20070525, end: 20071101
  2. COUMADIN [Concomitant]
     Indication: ANTIPHOSPHOLIPID SYNDROME
     Dates: start: 19910101

REACTIONS (7)
  - ARTHRALGIA [None]
  - BACK PAIN [None]
  - BREAST CANCER [None]
  - CONTUSION [None]
  - FALL [None]
  - HEPATIC ENZYME INCREASED [None]
  - POST-TRAUMATIC PAIN [None]
